FAERS Safety Report 18492131 (Version 1)
Quarter: 2020Q4

REPORT INFORMATION
  Report Type: Spontaneous
  Country: None (occurrence: FR)
  Receive Date: 20201111
  Receipt Date: 20201111
  Transmission Date: 20210114
  Serious: Yes (Other)
  Sender: FDA-Public Use
  Company Number: FR-AIR PRODUCTS AND CHEMICALS, INC. -2095821

PATIENT
  Age: 59 Year
  Sex: Male

DRUGS (1)
  1. OXYGEN. [Suspect]
     Active Substance: OXYGEN

REACTIONS (2)
  - Medication error [None]
  - Oxygen saturation decreased [None]
